FAERS Safety Report 21350342 (Version 1)
Quarter: 2022Q3

REPORT INFORMATION
  Report Type: Spontaneous
  Country: US (occurrence: None)
  Receive Date: 20220918
  Receipt Date: 20220918
  Transmission Date: 20221027
  Serious: Yes (Disabling, Other)
  Sender: FDA-Public Use
  Company Number: None

PATIENT
  Age: 61 Year
  Sex: Female
  Weight: 96.75 kg

DRUGS (10)
  1. BELBUCA [Suspect]
     Active Substance: BUPRENORPHINE HYDROCHLORIDE
     Indication: Pain
     Dosage: OTHER QUANTITY : 60 PATCH(ES);?FREQUENCY : TWICE A DAY;?OTHER ROUTE : INSIDE CHEEK;?
     Route: 050
     Dates: start: 20220906, end: 20220909
  2. NORCO [Concomitant]
     Active Substance: ACETAMINOPHEN\HYDROCODONE BITARTRATE
  3. ROBAXIN [Concomitant]
     Active Substance: METHOCARBAMOL
  4. TOPIRAMATE [Concomitant]
     Active Substance: TOPIRAMATE
  5. imatrix [Concomitant]
  6. EZETIMIBE [Concomitant]
     Active Substance: EZETIMIBE
  7. ONDANSETRON [Concomitant]
     Active Substance: ONDANSETRON
  8. PEPCID [Concomitant]
     Active Substance: FAMOTIDINE
  9. Guifenisen [Concomitant]
  10. QUININE [Concomitant]
     Active Substance: QUININE

REACTIONS (3)
  - Muscle spasms [None]
  - Muscle spasms [None]
  - Tooth disorder [None]

NARRATIVE: CASE EVENT DATE: 20220909
